FAERS Safety Report 6885153-8 (Version None)
Quarter: 2010Q3

REPORT INFORMATION
  Report Type: 
  Country: None (occurrence: None)
  Receive Date: 20100729
  Receipt Date: 20071205
  Transmission Date: 20110219
  Serious: No
  Sender: FDA-Public Use
  Company Number: US-PFIZER INC-2007102029

PATIENT
  Sex: Female
  Weight: 91 kg

DRUGS (4)
  1. CELEBREX [Suspect]
     Indication: ARTHRITIS
     Dates: start: 20070701, end: 20071101
  2. AMARYL [Concomitant]
  3. GLUCOPHAGE [Concomitant]
  4. CORTISONE [Concomitant]

REACTIONS (2)
  - JOINT SWELLING [None]
  - NERVOUSNESS [None]
